FAERS Safety Report 6498869-2 (Version None)
Quarter: 2009Q4

REPORT INFORMATION
  Report Type: 
  Country: None (occurrence: None)
  Receive Date: 20091215
  Receipt Date: 20091215
  Transmission Date: 20100525
  Serious: Yes (Life-Threatening)
  Sender: FDA-Public Use
  Company Number: PL-ABBOTT-09P-129-0612421-00

PATIENT
  Sex: Female
  Weight: 16.7 kg

DRUGS (7)
  1. SEVOFLURANE [Suspect]
     Indication: ANAESTHESIA
     Route: 055
     Dates: start: 20090929, end: 20090929
  2. SEVOFLURANE [Suspect]
     Indication: NUCLEAR MAGNETIC RESONANCE IMAGING
  3. ISOFLURANE [Suspect]
     Indication: ANAESTHESIA
     Route: 055
     Dates: start: 20090929, end: 20090929
  4. ISOFLURANE [Suspect]
     Indication: NUCLEAR MAGNETIC RESONANCE IMAGING
  5. RAD001 VS PLACEBO [Suspect]
     Indication: TUBEROUS SCLEROSIS
     Route: 055
     Dates: start: 20090929, end: 20090929
  6. NITROUS OXIDE [Suspect]
     Indication: ANAESTHESIA
     Route: 055
     Dates: start: 20090929, end: 20090929
  7. NITROUS OXIDE [Suspect]
     Indication: NUCLEAR MAGNETIC RESONANCE IMAGING

REACTIONS (1)
  - LARYNGEAL OEDEMA [None]
